FAERS Safety Report 5490782-2 (Version None)
Quarter: 2007Q4

REPORT INFORMATION
  Report Type: 
  Country: None (occurrence: None)
  Receive Date: 20071019
  Receipt Date: 20071008
  Transmission Date: 20080405
  Serious: Yes (Death)
  Sender: FDA-Public Use
  Company Number: US-JNJFOC-20071004272

PATIENT
  Age: 3 Month
  Sex: Male
  Weight: 3.63 kg

DRUGS (6)
  1. ACETAMINOPHEN [Suspect]
  2. ACETAMINOPHEN [Suspect]
     Indication: DRUG USE FOR UNKNOWN INDICATION
  3. PSEUDOEPHEDRINE HCL [Suspect]
     Indication: DRUG USE FOR UNKNOWN INDICATION
  4. DEXTROMETHORPHAN HYDROBROMIDE [Suspect]
     Indication: DRUG USE FOR UNKNOWN INDICATION
  5. DOXYLAMINE [Suspect]
     Indication: DRUG USE FOR UNKNOWN INDICATION
  6. NYSTATIN [Concomitant]
     Route: 048

REACTIONS (3)
  - ANOXIC ENCEPHALOPATHY [None]
  - DRUG TOXICITY [None]
  - LOWER LIMB FRACTURE [None]
